FAERS Safety Report 23729217 (Version 1)
Quarter: 2024Q2

REPORT INFORMATION
  Report Type: Spontaneous
  Country: US (occurrence: US)
  Receive Date: 20240410
  Receipt Date: 20240410
  Transmission Date: 20240716
  Serious: Yes (Hospitalization, Other)
  Sender: FDA-Public Use
  Company Number: US-AKCEA THERAPEUTICS, INC.-2024IS003202

PATIENT

DRUGS (2)
  1. TEGSEDI [Suspect]
     Active Substance: INOTERSEN SODIUM
     Indication: Hereditary neuropathic amyloidosis
     Dosage: 284 MG (1.5 ML), QW (EVERY SEVEN DAYS)
     Route: 058
  2. DIFLUNISAL [Concomitant]
     Active Substance: DIFLUNISAL
     Indication: Product used for unknown indication
     Dosage: UNK
     Route: 065

REACTIONS (10)
  - Loss of consciousness [Unknown]
  - Head injury [Unknown]
  - Fall [Unknown]
  - Dizziness [Unknown]
  - Blood pressure decreased [Unknown]
  - Blood glucose decreased [Unknown]
  - Product temperature excursion issue [Unknown]
  - Product distribution issue [Unknown]
  - Adverse drug reaction [Unknown]
  - Product dose omission issue [Unknown]

NARRATIVE: CASE EVENT DATE: 20210101
